FAERS Safety Report 18576946 (Version 4)
Quarter: 2021Q1

REPORT INFORMATION
  Report Type: Report from Study
  Country: US (occurrence: US)
  Receive Date: 20201204
  Receipt Date: 20210205
  Transmission Date: 20210419
  Serious: No
  Sender: FDA-Public Use
  Company Number: US-009507513-2011USA013567

PATIENT
  Age: 22 Year
  Sex: Female
  Weight: 57.33 kg

DRUGS (1)
  1. IMPLANON [Suspect]
     Active Substance: ETONOGESTREL
     Indication: CONTRACEPTION
     Dosage: 1 ROD EVERY 3 YEARS; ROUTE OF ADMINISTRATION: INSERTION, IN LEFT ARM; STRENGTH: 68 MILLIGRAM
     Route: 059
     Dates: start: 20201120, end: 20201120

REACTIONS (3)
  - No adverse event [Unknown]
  - Complication of device insertion [Not Recovered/Not Resolved]
  - Product quality issue [Unknown]

NARRATIVE: CASE EVENT DATE: 20201120
